FAERS Safety Report 20409226 (Version 1)
Quarter: 2022Q1

REPORT INFORMATION
  Report Type: Report from Study
  Country: ES (occurrence: ES)
  Receive Date: 20220201
  Receipt Date: 20220201
  Transmission Date: 20220423
  Serious: Yes (Other)
  Sender: FDA-Public Use
  Company Number: ES-TEVA-2022-ES-1997533

PATIENT
  Age: 8 Year
  Sex: Male

DRUGS (2)
  1. DEUTETRABENAZINE [Suspect]
     Active Substance: DEUTETRABENAZINE
     Dosage: 24 MILLIGRAM DAILY;
     Dates: start: 20211223, end: 20211229
  2. DEUTETRABENAZINE [Suspect]
     Active Substance: DEUTETRABENAZINE
     Dosage: 18 MILLIGRAM DAILY;
     Dates: start: 20211230

REACTIONS (2)
  - Urinary retention [Recovered/Resolved]
  - Muscle spasticity [Recovered/Resolved]

NARRATIVE: CASE EVENT DATE: 20210101
